FAERS Safety Report 7731192-4 (Version None)
Quarter: 2011Q3

REPORT INFORMATION
  Report Type: 
  Country: None (occurrence: None)
  Receive Date: 20110906
  Receipt Date: 20110902
  Transmission Date: 20111222
  Serious: Yes (Disabling)
  Sender: FDA-Public Use
  Company Number: PHHY2011AU62972

PATIENT
  Age: 68 Year
  Sex: Male

DRUGS (1)
  1. CLOZAPINE [Suspect]
     Indication: FRONTOTEMPORAL DEMENTIA
     Dosage: 250 MG

REACTIONS (1)
  - FRONTOTEMPORAL DEMENTIA [None]
